FAERS Safety Report 6974640-X (Version None)
Quarter: 2010Q3

REPORT INFORMATION
  Report Type: 
  Country: None (occurrence: None)
  Receive Date: 20100909
  Receipt Date: 20081202
  Transmission Date: 20110219
  Serious: No
  Sender: FDA-Public Use
  Company Number: US-WYE-H07070508

PATIENT
  Sex: Male

DRUGS (9)
  1. PRISTIQ [Suspect]
     Indication: DEPRESSION
     Route: 048
     Dates: start: 20081101
  2. PRISTIQ [Suspect]
     Indication: ANXIETY
  3. CLONOPIN [Concomitant]
  4. ATENOLOL [Concomitant]
  5. ACIPHEX [Concomitant]
  6. SULINDAC [Concomitant]
  7. SEROQUEL [Concomitant]
  8. WELLBUTRIN [Concomitant]
  9. TRAMADOL HCL [Concomitant]

REACTIONS (2)
  - DRUG INEFFECTIVE [None]
  - MEDICATION RESIDUE [None]
